FAERS Safety Report 5284674-1 (Version None)
Quarter: 2007Q2

REPORT INFORMATION
  Report Type: 
  Country: None (occurrence: None)
  Receive Date: 20070403
  Receipt Date: 20070323
  Transmission Date: 20071010
  Serious: Yes (Hospitalization)
  Sender: FDA-Public Use
  Company Number: IT-ROCHE-489237

PATIENT
  Age: 12 Year
  Sex: Male

DRUGS (2)
  1. MYCOPHENOLATE MOFETIL [Suspect]
     Route: 048
     Dates: start: 20070104
  2. FK506 [Suspect]
     Route: 048
     Dates: start: 20070105

REACTIONS (1)
  - BLADDER DISORDER [None]
